FAERS Safety Report 15766519 (Version 3)
Quarter: 2019Q1

REPORT INFORMATION
  Report Type: Spontaneous
  Country: US (occurrence: US)
  Receive Date: 20181227
  Receipt Date: 20190314
  Transmission Date: 20190417
  Serious: No
  Sender: FDA-Public Use
  Company Number: US-PFIZER INC-2018530913

PATIENT
  Age: 70 Year
  Sex: Female
  Weight: 70 kg

DRUGS (1)
  1. IBRANCE [Suspect]
     Active Substance: PALBOCICLIB
     Indication: BREAST CANCER METASTATIC
     Dosage: 125 MG, CYCLIC (DAYS 1-21 Q 28 DAYS)
     Route: 048
     Dates: start: 20181207

REACTIONS (10)
  - Pelvic pain [Unknown]
  - Nausea [Unknown]
  - Neck pain [Unknown]
  - Musculoskeletal pain [Unknown]
  - White blood cell count decreased [Unknown]
  - Product dose omission [Unknown]
  - Headache [Unknown]
  - Back pain [Unknown]
  - Pain [Unknown]
  - Flatulence [Unknown]

NARRATIVE: CASE EVENT DATE: 201812
